FAERS Safety Report 14697778 (Version 1)
Quarter: 2018Q1

REPORT INFORMATION
  Report Type: Spontaneous
  Country: US (occurrence: US)
  Receive Date: 20180330
  Receipt Date: 20180330
  Transmission Date: 20180509
  Serious: No
  Sender: FDA-Public Use
  Company Number: US-SA-2018SA012478

PATIENT
  Age: 80 Year
  Sex: Female

DRUGS (2)
  1. CLARITIN [Suspect]
     Active Substance: LORATADINE
     Route: 065
  2. ALLEGRA [Suspect]
     Active Substance: FEXOFENADINE HYDROCHLORIDE
     Route: 065

REACTIONS (4)
  - Rhinorrhoea [Unknown]
  - Blood test abnormal [Unknown]
  - Alopecia [Unknown]
  - Drug ineffective [Unknown]
